FAERS Safety Report 10046903 (Version 1)
Quarter: 2014Q1

REPORT INFORMATION
  Report Type: Report from Study
  Country: AR (occurrence: AR)
  Receive Date: 20140331
  Receipt Date: 20140331
  Transmission Date: 20141002
  Serious: Yes (Other)
  Sender: FDA-Public Use
  Company Number: PHHY2014AR038125

PATIENT
  Sex: Female

DRUGS (2)
  1. DIOVAN [Suspect]
     Indication: HYPERTENSION
     Dosage: 80 MG, DAILY
     Route: 048
     Dates: start: 2012
  2. DIOVAN [Suspect]
     Dosage: 160 MG, DAILY
     Route: 048
     Dates: start: 2012

REACTIONS (2)
  - Maculopathy [Not Recovered/Not Resolved]
  - Corneal disorder [Not Recovered/Not Resolved]
